FAERS Safety Report 16524395 (Version 2)
Quarter: 2025Q3

REPORT INFORMATION
  Report Type: Spontaneous
  Country: EU (occurrence: EU)
  Receive Date: 20190703
  Receipt Date: 20250717
  Transmission Date: 20251021
  Serious: Yes (Other)
  Sender: AUROBINDO
  Company Number: EU-AUROBINDO-AUR-APL-2019-038463

PATIENT
  Age: 84 Year
  Sex: Male

DRUGS (1)
  1. LINEZOLID [Suspect]
     Active Substance: LINEZOLID
     Indication: Antibiotic therapy
     Dosage: 600 MILLIGRAM, TWO TIMES A DAY
     Route: 042

REACTIONS (2)
  - Toxicity to various agents [Recovering/Resolving]
  - Gastrointestinal toxicity [Recovering/Resolving]
